FAERS Safety Report 8713151 (Version 4)
Quarter: 2019Q3

REPORT INFORMATION
  Report Type: Spontaneous
  Country: FR (occurrence: FR)
  Receive Date: 20120808
  Receipt Date: 20190829
  Transmission Date: 20191005
  Serious: Yes (Other)
  Sender: FDA-Public Use
  Company Number: FR-PFIZER INC-2012188032

PATIENT
  Age: 87 Year
  Sex: Male

DRUGS (15)
  1. PYOSTACINE [Suspect]
     Active Substance: PRISTINAMYCIN
     Indication: INFECTION
  2. BISOPROLOL [Concomitant]
     Active Substance: BISOPROLOL
     Dosage: UNK
     Route: 065
  3. PENTOXIFYLLINE. [Concomitant]
     Active Substance: PENTOXIFYLLINE
     Dosage: UNK
     Route: 065
  4. ZOVIRAX [Concomitant]
     Active Substance: ACYCLOVIR
     Indication: OPHTHALMIC HERPES ZOSTER
     Dosage: UNK
     Route: 065
     Dates: start: 20120506
  5. VALACICLOVIR [Concomitant]
     Active Substance: VALACYCLOVIR HYDROCHLORIDE
     Indication: OPHTHALMIC HERPES ZOSTER
     Dosage: UNK
     Route: 065
     Dates: start: 20120505, end: 20120506
  6. PREVISCAN [FLUINDIONE] [Concomitant]
     Active Substance: FLUINDIONE
     Dosage: UNK
  7. KALEORID [Concomitant]
     Active Substance: POTASSIUM CHLORIDE
     Dosage: UNK
     Route: 065
  8. NEO MERCAZOLE [Concomitant]
     Active Substance: CARBIMAZOLE
     Dosage: UNK
     Route: 065
  9. ALLOPURINOL. [Concomitant]
     Active Substance: ALLOPURINOL
     Dosage: UNK
     Route: 065
  10. ACICLOVIR [Suspect]
     Active Substance: ACYCLOVIR
     Indication: OPHTHALMIC HERPES ZOSTER
     Dosage: 10 MG/KG, DAILY
     Route: 042
     Dates: start: 20120506, end: 20120509
  11. TOBREX [Concomitant]
     Active Substance: TOBRAMYCIN
     Indication: OPHTHALMIC HERPES ZOSTER
     Dosage: UNK
     Route: 065
     Dates: start: 20120506
  12. TRIATEC [RAMIPRIL] [Suspect]
     Active Substance: RAMIPRIL
     Dosage: 2.5 MG, DAILY
     Route: 048
     Dates: end: 20120509
  13. PYOSTACINE [Suspect]
     Active Substance: PRISTINAMYCIN
     Indication: SKIN LESION
     Dosage: UNK
     Route: 048
     Dates: start: 20120506
  14. LASILIX [Suspect]
     Active Substance: FUROSEMIDE
     Dosage: 40 MG, 1X/DAY
     Route: 048
     Dates: end: 20120509
  15. PREVISCAN [Concomitant]
     Dosage: UNK
     Route: 065

REACTIONS (7)
  - Erythema [Unknown]
  - Conjunctivitis [Unknown]
  - Diarrhoea [Unknown]
  - Skin lesion [Unknown]
  - Bone lesion [Unknown]
  - Acute kidney injury [Recovering/Resolving]
  - Keratitis viral [Unknown]

NARRATIVE: CASE EVENT DATE: 20120505
